FAERS Safety Report 26068463 (Version 1)
Quarter: 2025Q4

REPORT INFORMATION
  Report Type: Spontaneous
  Country: EU (occurrence: EU)
  Receive Date: 20251120
  Receipt Date: 20251120
  Transmission Date: 20260118
  Serious: Yes (Hospitalization, Other)
  Sender: AUROBINDO
  Company Number: EU-BRISTOL-MYERS SQUIBB COMPANY-2025-149479

PATIENT
  Age: 58 Year
  Sex: Male

DRUGS (12)
  1. CARBOPLATIN [Suspect]
     Active Substance: CARBOPLATIN
     Indication: Non-small cell lung cancer
     Dosage: UNK
     Route: 065
  2. CARBOPLATIN [Suspect]
     Active Substance: CARBOPLATIN
     Dosage: 804 MILLIGRAM, UNK (SECOND COURSE)
     Route: 065
  3. OPDIVO [Suspect]
     Active Substance: NIVOLUMAB
     Indication: Non-small cell lung cancer
     Dosage: UNK
     Route: 065
  4. OPDIVO [Suspect]
     Active Substance: NIVOLUMAB
     Dosage: 360 MILLIGRAM, UNK (SECOND COURSE)
     Route: 065
  5. YERVOY [Suspect]
     Active Substance: IPILIMUMAB
     Indication: Non-small cell lung cancer
     Dosage: UNK
     Route: 065
  6. PACLITAXEL [Suspect]
     Active Substance: PACLITAXEL
     Indication: Non-small cell lung cancer
     Dosage: UNK
     Route: 065
  7. PACLITAXEL [Suspect]
     Active Substance: PACLITAXEL
     Dosage: 361 MILLIGRAM, UNK (SECOND COURSE)
     Route: 065
  8. DEMEZON [DEXAMETHASONE] [Concomitant]
     Indication: Product used for unknown indication
     Dosage: UNK
     Route: 065
  9. CLEMASTINE [Concomitant]
     Active Substance: CLEMASTINE
     Indication: Product used for unknown indication
     Dosage: UNK
     Route: 065
  10. FAMOTIDINE [Concomitant]
     Active Substance: FAMOTIDINE
     Indication: Product used for unknown indication
     Dosage: UNK
     Route: 065
  11. ONDANSETRON [Concomitant]
     Active Substance: ONDANSETRON
     Indication: Product used for unknown indication
     Dosage: UNK
     Route: 065
  12. CORHYDRON [HYDROCORTISONE] [Concomitant]
     Indication: Product used for unknown indication
     Dosage: UNK
     Route: 065

REACTIONS (12)
  - Pneumonia [Unknown]
  - Cholelithiasis [Recovered/Resolved]
  - Liver injury [Recovering/Resolving]
  - Malaise [Recovering/Resolving]
  - Headache [Recovering/Resolving]
  - Nausea [Recovering/Resolving]
  - Neutropenia [Recovering/Resolving]
  - Urticaria papular [Recovering/Resolving]
  - Communication disorder [Recovering/Resolving]
  - Rash [Unknown]
  - Pruritus [Unknown]
  - Dry skin [Unknown]

NARRATIVE: CASE EVENT DATE: 20240101
